FAERS Safety Report 13601329 (Version 3)
Quarter: 2017Q3

REPORT INFORMATION
  Report Type: Spontaneous
  Country: CH (occurrence: CH)
  Receive Date: 20170601
  Receipt Date: 20170926
  Transmission Date: 20171127
  Serious: Yes (Hospitalization, Other)
  Sender: FDA-Public Use
  Company Number: CH-BEH-2017080845

PATIENT
  Age: 50 Year
  Sex: Female

DRUGS (22)
  1. PRIVIGEN [Interacting]
     Active Substance: HUMAN IMMUNOGLOBULIN G
     Dosage: 28 G, QD
     Route: 042
     Dates: start: 20170510, end: 20170515
  2. PRIVIGEN [Interacting]
     Active Substance: HUMAN IMMUNOGLOBULIN G
     Dosage: 28 G, QD
     Route: 042
     Dates: start: 20170718, end: 20170722
  3. RIVOTRIL [Suspect]
     Active Substance: CLONAZEPAM
     Dosage: 1.5 MG/24 HOURS
     Route: 042
     Dates: start: 20170420
  4. SOLU-MEDROL [Suspect]
     Active Substance: METHYLPREDNISOLONE SODIUM SUCCINATE
     Dosage: UNK
     Route: 042
     Dates: start: 20170420, end: 20170423
  5. VALPROAT [Suspect]
     Active Substance: VALPROATE SODIUM
     Dosage: UNK
     Route: 048
     Dates: start: 201707, end: 201707
  6. PRIVIGEN [Interacting]
     Active Substance: HUMAN IMMUNOGLOBULIN G
     Dosage: 28 G, QD
     Route: 042
     Dates: start: 20170614, end: 20170618
  7. PROPOFOL. [Suspect]
     Active Substance: PROPOFOL
     Dosage: UNK
     Route: 042
     Dates: start: 20170426, end: 20170503
  8. PHENHYDAN                          /00017401/ [Suspect]
     Active Substance: PHENYTOIN
     Dosage: 100 MG, BID
     Route: 042
     Dates: end: 20170511
  9. VIMPAT [Suspect]
     Active Substance: LACOSAMIDE
     Dosage: 200 MG, BID
     Route: 048
     Dates: start: 20170420, end: 20170512
  10. ENALAPRIL [Suspect]
     Active Substance: ENALAPRIL
     Dosage: 5 MG, BID
     Route: 048
     Dates: start: 20170420, end: 20170509
  11. HEPARIN [Concomitant]
     Active Substance: HEPARIN SODIUM
     Dosage: UNK
     Route: 042
     Dates: start: 20170713, end: 20170713
  12. PREDNISONE. [Suspect]
     Active Substance: PREDNISONE
     Dosage: 75 MG, QD
     Route: 048
     Dates: start: 20170423
  13. MEROPENEM LABATEC [Suspect]
     Active Substance: MEROPENEM
     Dosage: UNK
     Route: 042
     Dates: start: 20170713, end: 20170716
  14. CIPROFLOXACIN HYDROCHLORIDE. [Suspect]
     Active Substance: CIPROFLOXACIN HYDROCHLORIDE
     Dosage: UNK
     Route: 048
     Dates: start: 20170716, end: 20170719
  15. BENERVA [Concomitant]
     Active Substance: THIAMINE
     Dosage: 300 MG, QD
     Route: 042
     Dates: start: 20170420
  16. KEPPRA [Concomitant]
     Active Substance: LEVETIRACETAM
     Route: 048
  17. FYCOMPA [Suspect]
     Active Substance: PERAMPANEL
     Dosage: 8 MG, QD
     Route: 048
     Dates: start: 20170420, end: 20170512
  18. CLEXANE [Suspect]
     Active Substance: ENOXAPARIN SODIUM
     Dosage: 40 MG, UNK
     Route: 058
     Dates: start: 20170420
  19. RITUXIMAB. [Suspect]
     Active Substance: RITUXIMAB
     Dosage: 1000 MG, UNK
     Route: 042
     Dates: end: 20170426
  20. CO-AMOXI [Suspect]
     Active Substance: AMOXICILLIN\CLAVULANATE POTASSIUM
     Dosage: UNK
     Route: 042
     Dates: start: 20170719, end: 20170721
  21. PRIVIGEN [Suspect]
     Active Substance: HUMAN IMMUNOGLOBULIN G
     Indication: PRODUCT USED FOR UNKNOWN INDICATION
     Dosage: UNK
     Route: 042
     Dates: start: 20170420, end: 20170423
  22. NEXIUM [Suspect]
     Active Substance: ESOMEPRAZOLE MAGNESIUM
     Dosage: UNK
     Route: 048
     Dates: start: 20170626, end: 201707

REACTIONS (10)
  - Toxic epidermal necrolysis [Recovered/Resolved]
  - Staphylococcus test positive [Unknown]
  - Toxic epidermal necrolysis [Recovering/Resolving]
  - Pyrexia [Recovering/Resolving]
  - Rash [Recovered/Resolved]
  - Exfoliative rash [Recovered/Resolved]
  - Hepatocellular injury [Recovering/Resolving]
  - Drug-induced liver injury [Recovering/Resolving]
  - Rash maculo-papular [Recovered/Resolved]
  - Skin lesion [Recovered/Resolved]

NARRATIVE: CASE EVENT DATE: 20170501
